FAERS Safety Report 8286474-7 (Version None)
Quarter: 2012Q2

REPORT INFORMATION
  Report Type: 
  Country: None (occurrence: None)
  Receive Date: 20120416
  Receipt Date: 20120412
  Transmission Date: 20120825
  Serious: Yes (Death, Other)
  Sender: FDA-Public Use
  Company Number: PE-PFIZER INC-2012063200

PATIENT
  Age: 99 Year
  Sex: Female

DRUGS (3)
  1. CLOPIDOGREL [Concomitant]
     Dosage: UNK
     Route: 048
  2. CLOXIN [Concomitant]
     Dosage: UNK
     Route: 048
  3. NORVASC [Suspect]
     Indication: HYPERTENSION
     Dosage: 5 MG, 1X/DAY
     Route: 048

REACTIONS (2)
  - RESPIRATORY ARREST [None]
  - PNEUMONIA [None]
